FAERS Safety Report 9357104 (Version 1)
Quarter: 2013Q2

REPORT INFORMATION
  Report Type: Spontaneous
  Country: IT (occurrence: IT)
  Receive Date: 20130620
  Receipt Date: 20130620
  Transmission Date: 20140414
  Serious: Yes (Other)
  Sender: FDA-Public Use
  Company Number: IT-ACCORD-017945

PATIENT
  Age: 61 Year
  Sex: Male
  Weight: 59 kg

DRUGS (5)
  1. GEMCITABINE [Suspect]
     Indication: BLADDER CANCER
     Route: 042
     Dates: start: 20130225, end: 20130513
  2. CISPLATIN [Suspect]
     Indication: BLADDER CANCER
     Route: 042
     Dates: start: 20130225, end: 20130513
  3. SOLDESAM [Concomitant]
     Route: 042
  4. RANIDIL [Concomitant]
     Route: 042
  5. ONDANSETRON [Concomitant]
     Route: 042

REACTIONS (9)
  - Constipation [Recovering/Resolving]
  - Fatigue [Recovering/Resolving]
  - Skin discolouration [Recovering/Resolving]
  - Off label use [Unknown]
  - Hyperpyrexia [Recovering/Resolving]
  - Nausea [Recovering/Resolving]
  - Vomiting [Recovering/Resolving]
  - Chest pain [Recovering/Resolving]
  - Diarrhoea [Recovering/Resolving]
